FAERS Safety Report 7617244 (Version 2)
Quarter: 2013Q3

REPORT INFORMATION
  Report Type: Spontaneous
  Country: US (occurrence: US)
  Receive Date: 20101005
  Receipt Date: 20130828
  Transmission Date: 20140515
  Serious: Yes (Other)
  Sender: FDA-Public Use
  Company Number: US-ROCHE-714525

PATIENT
  Age: 18 Year
  Sex: Male
  Weight: 88.5 kg

DRUGS (3)
  1. ACCUTANE [Suspect]
     Indication: ACNE
     Route: 065
     Dates: start: 20030128, end: 200308
  2. ACCUTANE [Suspect]
     Route: 065
     Dates: start: 20051222, end: 20060703
  3. KENALOG [Concomitant]
     Indication: ACNE
     Route: 026

REACTIONS (6)
  - Colitis ulcerative [Unknown]
  - Inflammatory bowel disease [Unknown]
  - Stress [Unknown]
  - Blood glucose decreased [Unknown]
  - Nasal dryness [Unknown]
  - Lip dry [Unknown]
